FAERS Safety Report 6157794-7 (Version None)
Quarter: 2009Q2

REPORT INFORMATION
  Report Type: 
  Country: None (occurrence: None)
  Receive Date: 20090409
  Receipt Date: 20090330
  Transmission Date: 20091009
  Serious: Yes (Other)
  Sender: FDA-Public Use
  Company Number: AEUSA200900068

PATIENT
  Age: 19 Year
  Sex: Male
  Weight: 117.028 kg

DRUGS (5)
  1. IMMUNE GLOBULIN (HUMAN) [Suspect]
     Indication: IMMUNODEFICIENCY COMMON VARIABLE
     Dosage: 40 GM;Q3W;IV
     Route: 042
     Dates: start: 20040101, end: 20070101
  2. GAMIMUNE N [Suspect]
     Indication: IMMUNODEFICIENCY COMMON VARIABLE
     Dosage: 40 GM;Q3W;IV
     Route: 042
  3. TYLENOL REGULAR [Concomitant]
  4. DIPHENHYDRAMINE HCL [Concomitant]
  5. DECADRON/03050601 [Concomitant]

REACTIONS (12)
  - ANAPHYLACTIC REACTION [None]
  - BLOOD GLUCOSE DECREASED [None]
  - CRYING [None]
  - HEADACHE [None]
  - HYPOAESTHESIA [None]
  - LOSS OF CONSCIOUSNESS [None]
  - MENTAL STATUS CHANGES [None]
  - NAUSEA [None]
  - PAIN [None]
  - PARAESTHESIA [None]
  - PRESYNCOPE [None]
  - TACHYCARDIA [None]
